FAERS Safety Report 16134008 (Version 2)
Quarter: 2019Q3

REPORT INFORMATION
  Report Type: Spontaneous
  Country: US (occurrence: US)
  Receive Date: 20190329
  Receipt Date: 20190927
  Transmission Date: 20191004
  Serious: No
  Sender: FDA-Public Use
  Company Number: US-MYLANLABS-2019M1022243

PATIENT
  Sex: Female
  Weight: 59 kg

DRUGS (1)
  1. LEVONORGESTREL AND ETHINYL ESTRADIOL TABLETS, USP [Suspect]
     Active Substance: ETHINYL ESTRADIOL\LEVONORGESTREL
     Indication: CONTRACEPTION
     Dosage: UNK
     Route: 048

REACTIONS (1)
  - Wrong technique in product usage process [Recovered/Resolved]
